FAERS Safety Report 24891512 (Version 1)
Quarter: 2025Q1

REPORT INFORMATION
  Report Type: Spontaneous
  Country: US (occurrence: US)
  Receive Date: 20250127
  Receipt Date: 20250127
  Transmission Date: 20250408
  Serious: Yes (Congenital Anomaly, Other)
  Sender: MERCK
  Company Number: US-009507513-2501USA006657

PATIENT
  Age: 0 Year
  Sex: Female
  Weight: 4.053 kg

DRUGS (7)
  1. JANUMET [Suspect]
     Active Substance: METFORMIN HYDROCHLORIDE\SITAGLIPTIN PHOSPHATE
     Route: 064
  2. GILENYA [Suspect]
     Active Substance: FINGOLIMOD HYDROCHLORIDE
     Dosage: 0.5 MILLIGRAM, QD
     Route: 064
     Dates: start: 201908
  3. OMEPRAZOLE [Suspect]
     Active Substance: OMEPRAZOLE
     Dosage: 40 MILLIGRAM, QD
     Route: 064
  4. PROAIR HFA [Suspect]
     Active Substance: ALBUTEROL SULFATE
     Route: 064
  5. LEVOCABASTINE HYDROCHLORIDE [Suspect]
     Active Substance: LEVOCABASTINE HYDROCHLORIDE
     Dosage: 10 MILLIGRAM, QD
     Route: 064
  6. HUMALOG [Suspect]
     Active Substance: INSULIN LISPRO
     Route: 064
  7. INSULIN NOS [Suspect]
     Active Substance: INSULIN NOS
     Route: 064

REACTIONS (4)
  - Gastrooesophageal reflux in neonate [Unknown]
  - Congenital torticollis [Unknown]
  - Breech presentation [Unknown]
  - Foetal exposure during pregnancy [Unknown]

NARRATIVE: CASE EVENT DATE: 20220419
